FAERS Safety Report 12674318 (Version 1)
Quarter: 2016Q3

REPORT INFORMATION
  Report Type: Report from Study
  Country: US (occurrence: US)
  Receive Date: 20160822
  Receipt Date: 20160822
  Transmission Date: 20161109
  Serious: Yes (Death, Other)
  Sender: FDA-Public Use
  Company Number: US-ASTRAZENECA-2016SE89195

PATIENT
  Age: 610 Month
  Sex: Male
  Weight: 109.3 kg

DRUGS (11)
  1. AMLODIPINE BESYLATE. [Concomitant]
     Active Substance: AMLODIPINE BESYLATE
     Indication: BLOOD PRESSURE ABNORMAL
     Route: 048
     Dates: start: 2015
  2. BUPROPION. [Concomitant]
     Active Substance: BUPROPION
     Indication: DEPRESSION
     Route: 048
     Dates: start: 2015
  3. ALPRAZOLAM. [Concomitant]
     Active Substance: ALPRAZOLAM
     Indication: ANXIETY DISORDER
     Dosage: 1 MG, ORDERED THREE TIMES A DAY BUT TAKEN AS NEEDED
     Route: 048
  4. OMEPRAZOLE. [Suspect]
     Active Substance: OMEPRAZOLE
     Indication: ANGINA PECTORIS
     Route: 048
  5. LISINOPRIL. [Suspect]
     Active Substance: LISINOPRIL
     Indication: BLOOD PRESSURE ABNORMAL
     Route: 048
  6. MAG OXIDE [Concomitant]
     Active Substance: MAGNESIUM OXIDE
     Route: 048
  7. TRAZODONE [Concomitant]
     Active Substance: TRAZODONE HYDROCHLORIDE
     Indication: SLEEP DISORDER
     Route: 048
     Dates: start: 2010
  8. CRESTOR [Suspect]
     Active Substance: ROSUVASTATIN CALCIUM
     Indication: BLOOD CHOLESTEROL ABNORMAL
     Route: 048
  9. OMEPRAZOLE. [Suspect]
     Active Substance: OMEPRAZOLE
     Indication: ANGINA PECTORIS
     Dosage: GENERIC FOR NEXIUM AND THE PURPLE PILL.
     Route: 048
  10. ASPIRIN. [Concomitant]
     Active Substance: ASPIRIN
     Indication: BLOOD PRESSURE ABNORMAL
     Route: 048
  11. FERROUS SULFATE. [Concomitant]
     Active Substance: FERROUS SULFATE
     Indication: IRON DEFICIENCY
     Route: 048

REACTIONS (22)
  - Death [Fatal]
  - Myocardial infarction [Fatal]
  - Anxiety [Unknown]
  - Blood cholesterol increased [Unknown]
  - Alcohol poisoning [Fatal]
  - Burns third degree [Unknown]
  - Sinusitis [Unknown]
  - Hypertension [Unknown]
  - Glucose tolerance impaired [Unknown]
  - Insomnia [Unknown]
  - Bundle branch block [Unknown]
  - Feeling abnormal [Unknown]
  - Pain [Unknown]
  - Wound [Unknown]
  - Peripheral arterial occlusive disease [Unknown]
  - Body height decreased [Unknown]
  - Blood triglycerides increased [Unknown]
  - Arterial bypass occlusion [Unknown]
  - Drug dose omission [Unknown]
  - Nerve injury [Unknown]
  - Myopathy [Unknown]
  - Depression [Unknown]

NARRATIVE: CASE EVENT DATE: 200306
